APPROVED DRUG PRODUCT: ELIDEL
Active Ingredient: PIMECROLIMUS
Strength: 1%
Dosage Form/Route: CREAM;TOPICAL
Application: N021302 | Product #001 | TE Code: AB
Applicant: BAUSCH HEALTH US LLC
Approved: Dec 13, 2001 | RLD: Yes | RS: Yes | Type: RX